FAERS Safety Report 14505669 (Version 1)
Quarter: 2018Q1

REPORT INFORMATION
  Report Type: Spontaneous
  Country: PL (occurrence: PL)
  Receive Date: 20180208
  Receipt Date: 20180208
  Transmission Date: 20180509
  Serious: Yes (Hospitalization)
  Sender: FDA-Public Use
  Company Number: PL-AUROBINDO-AUR-APL-2018-005241

PATIENT
  Age: 39 Year
  Sex: Male

DRUGS (7)
  1. DABIGATRAN [Suspect]
     Active Substance: DABIGATRAN
     Indication: ATRIAL FIBRILLATION
     Dosage: 150 MG, BID FOR 8 WEEKS
     Route: 065
  2. ACETYLSALICYLIC ACID [Suspect]
     Active Substance: ASPIRIN
     Indication: ANTICOAGULANT THERAPY
     Dosage: 150 MG, QD
     Route: 065
  3. PROPAFENONE. [Suspect]
     Active Substance: PROPAFENONE
     Indication: ARRHYTHMIA
     Dosage: 150 MG, TID
     Route: 065
  4. AMLODIPINA + LISINOPRIL [Suspect]
     Active Substance: AMLODIPINE BESYLATE\LISINOPRIL
     Indication: ATRIAL FIBRILLATION
     Dosage: ONE TABLET IN THE MORNING AND HALF TABLET IN EVENING ()
     Route: 065
  5. METOPROLOL FILM COATED TABLETS [Suspect]
     Active Substance: METOPROLOL
     Indication: ARRHYTHMIA
     Dosage: 25 MG, QD
     Route: 065
  6. BISOPROLOL FILM-COATED TABLETS [Suspect]
     Active Substance: BISOPROLOL
     Indication: ATRIAL FIBRILLATION
     Dosage: 1 DF, QD
     Route: 065
  7. ATORVASTATIN FILM COATED TABLET [Suspect]
     Active Substance: ATORVASTATIN
     Indication: ATRIAL FIBRILLATION
     Dosage: 1 DF, QD EVENING
     Route: 065

REACTIONS (8)
  - Drug ineffective [Unknown]
  - Transient ischaemic attack [Unknown]
  - Facial asymmetry [Recovered/Resolved]
  - Speech disorder [Recovered/Resolved]
  - Muscular weakness [Recovered/Resolved]
  - Muscular weakness [None]
  - Epistaxis [Recovered/Resolved]
  - Blood pressure systolic increased [None]
